FAERS Safety Report 18624401 (Version 1)
Quarter: 2020Q4

REPORT INFORMATION
  Report Type: Spontaneous
  Country: US (occurrence: US)
  Receive Date: 20201216
  Receipt Date: 20201216
  Transmission Date: 20210114
  Serious: Yes (Death, Disabling, Other)
  Sender: FDA-Public Use
  Company Number: US-PURDUE-USA-2020-0179878

PATIENT
  Sex: Female

DRUGS (1)
  1. HYDROCODONE BITARTRATE AND ACETAMINOPHEN [Suspect]
     Active Substance: ACETAMINOPHEN\HYDROCODONE BITARTRATE
     Indication: PRODUCT USED FOR UNKNOWN INDICATION
     Dosage: UNK
     Route: 048

REACTIONS (50)
  - Death [Fatal]
  - Motor neurone disease [Unknown]
  - Injury [Unknown]
  - Hypertension [Unknown]
  - Diarrhoea [Unknown]
  - Cognitive disorder [Unknown]
  - Judgement impaired [Unknown]
  - Feeling jittery [Unknown]
  - Depressed level of consciousness [Unknown]
  - Major depression [Unknown]
  - Apathy [Unknown]
  - Dry mouth [Unknown]
  - Muscle spasms [Unknown]
  - Overdose [Unknown]
  - Dependence [Unknown]
  - Cardiac disorder [Unknown]
  - Toxicity to various agents [Unknown]
  - Sleep disorder [Unknown]
  - Infection [Unknown]
  - Restlessness [Unknown]
  - Neoplasm malignant [Unknown]
  - Brain hypoxia [Unknown]
  - Tooth loss [Unknown]
  - Mydriasis [Unknown]
  - Inappropriate affect [Unknown]
  - Drug dependence [Unknown]
  - Learning disability [Unknown]
  - Autoimmune disorder [Unknown]
  - Atrial fibrillation [Unknown]
  - Nutritional condition abnormal [Unknown]
  - Progesterone decreased [Unknown]
  - Chills [Unknown]
  - Disturbance in attention [Unknown]
  - Drug withdrawal syndrome [Unknown]
  - Bradycardia [Unknown]
  - Blood pressure abnormal [Unknown]
  - Epistaxis [Unknown]
  - Thyroid disorder [Unknown]
  - Immunosuppression [Unknown]
  - Schizophrenia [Unknown]
  - Respiratory depression [Unknown]
  - Dysarthria [Unknown]
  - Weight fluctuation [Unknown]
  - Developmental delay [Unknown]
  - Deafness [Unknown]
  - Hyperhidrosis [Unknown]
  - Blood testosterone decreased [Unknown]
  - Blood oestrogen decreased [Unknown]
  - Asthenia [Unknown]
  - Dyskinesia [Unknown]

NARRATIVE: CASE EVENT DATE: 20100414
